FAERS Safety Report 7810651-X (Version None)
Quarter: 2011Q4

REPORT INFORMATION
  Report Type: 
  Country: None (occurrence: None)
  Receive Date: 20111013
  Receipt Date: 20111005
  Transmission Date: 20120403
  Serious: No
  Sender: FDA-Public Use
  Company Number: US-BIOGENIDEC-2011BI038368

PATIENT
  Age: 40 Year
  Sex: Female

DRUGS (3)
  1. TYSABRI [Suspect]
     Route: 042
     Dates: start: 20090902, end: 20110523
  2. TYSABRI [Suspect]
     Route: 042
     Dates: start: 20111003
  3. TYSABRI [Suspect]
     Indication: MULTIPLE SCLEROSIS
     Route: 042
     Dates: start: 20070928, end: 20080703

REACTIONS (15)
  - WEIGHT INCREASED [None]
  - FEELING ABNORMAL [None]
  - ASTHENIA [None]
  - BALANCE DISORDER [None]
  - MALAISE [None]
  - GAIT DISTURBANCE [None]
  - NEURALGIA [None]
  - HEADACHE [None]
  - HYPOTONIA [None]
  - NERVOUSNESS [None]
  - SOMNOLENCE [None]
  - MUSCLE SPASMS [None]
  - DIPLOPIA [None]
  - PAIN [None]
  - MULTIPLE SCLEROSIS RELAPSE [None]
